FAERS Safety Report 9240547 (Version 1)
Quarter: 2013Q1

REPORT INFORMATION
  Report Type: Spontaneous
  Country: US (occurrence: None)
  Receive Date: 20121120
  Receipt Date: 20121120
  Transmission Date: 20140127
  Serious: No
  Sender: FDA-Public Use
  Company Number: 1000038617

PATIENT
  Age: 53 Year
  Sex: Female

DRUGS (4)
  1. VIIBRYD [Suspect]
     Indication: DEPRESSION
     Route: 048
     Dates: start: 2012, end: 201208
  2. VIIBRYD [Suspect]
     Indication: DEPRESSION
     Route: 048
  3. XANAX (ALPRAZOLAM) [Concomitant]
  4. VITAMINS NOS (VIGTAMINS NOS) [Concomitant]

REACTIONS (3)
  - Feeling abnormal [None]
  - Somnolence [None]
  - Drug ineffective [None]
